FAERS Safety Report 8792820 (Version 2)
Quarter: 2013Q4

REPORT INFORMATION
  Report Type: Spontaneous
  Country: US (occurrence: US)
  Receive Date: 20120918
  Receipt Date: 20131101
  Transmission Date: 20140711
  Serious: Yes (Other)
  Sender: FDA-Public Use
  Company Number: US-009507513-1209USA003442

PATIENT
  Age: 46 Year
  Sex: Male

DRUGS (6)
  1. ISENTRESS [Suspect]
     Route: 048
  2. DARUNAVIR [Suspect]
     Dosage: 600 MG, BID
     Route: 048
  3. TRUVADA [Suspect]
  4. ETRAVIRINE [Suspect]
  5. DAPSONE [Concomitant]
  6. DIAZEPAM [Concomitant]

REACTIONS (1)
  - Rash [Unknown]
